FAERS Safety Report 17862180 (Version 1)
Quarter: 2020Q2

REPORT INFORMATION
  Report Type: Spontaneous
  Country: US (occurrence: US)
  Receive Date: 20200604
  Receipt Date: 20200604
  Transmission Date: 20200714
  Serious: No
  Sender: FDA-Public Use
  Company Number: NVSC2020US155229

PATIENT
  Age: 35 Year
  Sex: Female

DRUGS (2)
  1. MEKINIST [Suspect]
     Active Substance: TRAMETINIB DIMETHYL SULFOXIDE
     Indication: PRODUCT USED FOR UNKNOWN INDICATION
     Dosage: 1 MG
     Route: 048
     Dates: start: 20200117
  2. MEKINIST [Suspect]
     Active Substance: TRAMETINIB DIMETHYL SULFOXIDE
     Dosage: 1 MG
     Route: 048
     Dates: start: 20200117

REACTIONS (2)
  - Impaired healing [Not Recovered/Not Resolved]
  - Lip injury [Not Recovered/Not Resolved]

NARRATIVE: CASE EVENT DATE: 20200201
